FAERS Safety Report 15618324 (Version 6)
Quarter: 2019Q1

REPORT INFORMATION
  Report Type: Spontaneous
  Country: US (occurrence: US)
  Receive Date: 20181114
  Receipt Date: 20190228
  Transmission Date: 20190417
  Serious: Yes (Other)
  Sender: FDA-Public Use
  Company Number: US-MALLINCKRODT-T201804867

PATIENT
  Sex: Female
  Weight: 78 kg

DRUGS (4)
  1. OLUMIANT [Suspect]
     Active Substance: BARICITINIB
     Indication: RHEUMATOID ARTHRITIS
     Dosage: 2 MG 1 TABLET, EVERY DAY AS DIRECTED
     Route: 048
     Dates: start: 201809, end: 2018
  2. H.P. ACTHAR [Suspect]
     Active Substance: CORTICOTROPIN
     Indication: RHEUMATOID ARTHRITIS
     Dosage: 80 UNITS/1 ML, TWO TIMES PER WEEK
     Route: 058
     Dates: start: 201803, end: 2018
  3. H.P. ACTHAR [Suspect]
     Active Substance: CORTICOTROPIN
     Dosage: 80 UNITS/1 ML TWO TIMES PER WEEK AS DIRECTED
     Route: 058
     Dates: start: 201811, end: 2018
  4. H.P. ACTHAR [Suspect]
     Active Substance: CORTICOTROPIN
     Dosage: 80 UNITS/1 ML TWO TIMES PER WEEK AS DIRECTED
     Route: 058
     Dates: start: 2018

REACTIONS (10)
  - Depression [Unknown]
  - Diplopia [Unknown]
  - Rheumatoid arthritis [Not Recovered/Not Resolved]
  - Weight increased [Unknown]
  - Bladder operation [Unknown]
  - Restlessness [Unknown]
  - Anxiety [Unknown]
  - Visual impairment [Unknown]
  - Headache [Unknown]
  - Insomnia [Unknown]

NARRATIVE: CASE EVENT DATE: 2018
